FAERS Safety Report 7404847-9 (Version None)
Quarter: 2011Q2

REPORT INFORMATION
  Report Type: 
  Country: None (occurrence: None)
  Receive Date: 20110411
  Receipt Date: 20110307
  Transmission Date: 20111010
  Serious: Yes (Other)
  Sender: FDA-Public Use
  Company Number: US-JNJFOC-20110303893

PATIENT
  Age: 52 Year
  Sex: Male

DRUGS (4)
  1. TRUVADA [Suspect]
     Indication: HIV INFECTION
     Route: 065
  2. ZOVIRAX [Concomitant]
     Route: 065
  3. NORVIR [Suspect]
     Indication: HIV INFECTION
     Route: 065
  4. PREZISTA [Suspect]
     Indication: HIV INFECTION
     Route: 065

REACTIONS (2)
  - CYSTOID MACULAR OEDEMA [None]
  - IMMUNE RECONSTITUTION SYNDROME [None]
